FAERS Safety Report 21801561 (Version 5)
Quarter: 2023Q1

REPORT INFORMATION
  Report Type: Report from Study
  Country: BE (occurrence: BE)
  Receive Date: 20221230
  Receipt Date: 20230320
  Transmission Date: 20230418
  Serious: Yes (Hospitalization)
  Sender: FDA-Public Use
  Company Number: BE-BAYER-2022P028493

PATIENT
  Age: 62 Year
  Sex: Male
  Weight: 59 kg

DRUGS (2)
  1. REGORAFENIB [Suspect]
     Active Substance: REGORAFENIB
     Indication: Rectal cancer stage III
     Dosage: 80 MG, QD
     Route: 048
     Dates: start: 20221114, end: 20221212
  2. NIVOLUMAB [Suspect]
     Active Substance: NIVOLUMAB
     Indication: Rectal cancer stage III
     Dosage: 240 MG, Q2WK
     Route: 042
     Dates: start: 20221114, end: 20221219

REACTIONS (2)
  - Proctitis [Recovered/Resolved]
  - Rash maculo-papular [Recovered/Resolved]

NARRATIVE: CASE EVENT DATE: 20221126
